FAERS Safety Report 22135244 (Version 1)
Quarter: 2023Q1

REPORT INFORMATION
  Report Type: Spontaneous
  Country: FR (occurrence: FR)
  Receive Date: 20230324
  Receipt Date: 20230324
  Transmission Date: 20230418
  Serious: Yes (Hospitalization, Other)
  Sender: FDA-Public Use
  Company Number: None

PATIENT
  Age: 22 Year
  Sex: Male

DRUGS (1)
  1. TRAMADOL [Suspect]
     Active Substance: TRAMADOL
     Indication: Product used for unknown indication
     Dosage: 200 MG, QD 5-10 TABLETS OF 200 MG PER DAY, PER OS
     Route: 048
     Dates: start: 202212

REACTIONS (3)
  - Suicidal ideation [Recovering/Resolving]
  - Intentional product misuse [Recovered/Resolved]
  - Hallucinations, mixed [Recovering/Resolving]

NARRATIVE: CASE EVENT DATE: 20221201
